FAERS Safety Report 21258191 (Version 2)
Quarter: 2023Q1

REPORT INFORMATION
  Report Type: Spontaneous
  Country: US (occurrence: US)
  Receive Date: 20220826
  Receipt Date: 20230330
  Transmission Date: 20230418
  Serious: Yes (Other)
  Sender: FDA-Public Use
  Company Number: US-JNJFOC-ALZ-11512

PATIENT
  Age: 5 Decade
  Sex: Female
  Weight: 53.64 kg

DRUGS (7)
  1. ELMIRON [Suspect]
     Active Substance: PENTOSAN POLYSULFATE SODIUM
     Indication: Cystitis interstitial
     Dosage: VARYING DOSES IF 100 MG THRICE A DAY AND 200 MG THRICE A DAY
     Route: 048
     Dates: start: 1996, end: 200508
  2. ATARAX [Concomitant]
     Active Substance: HYDROXYZINE HYDROCHLORIDE
     Indication: Cystitis interstitial
  3. ELAVIL [Concomitant]
     Active Substance: AMITRIPTYLINE HYDROCHLORIDE
     Indication: Cystitis interstitial
  4. ZYRTEC [Concomitant]
     Active Substance: CETIRIZINE HYDROCHLORIDE
     Indication: Cystitis interstitial
  5. XANAX [Concomitant]
     Active Substance: ALPRAZOLAM
     Indication: Cystitis interstitial
  6. ULTRAM [Concomitant]
     Active Substance: TRAMADOL HYDROCHLORIDE
     Indication: Cystitis interstitial
  7. ESTRACE [Concomitant]
     Active Substance: ESTRADIOL
     Indication: Menopause

REACTIONS (6)
  - Maculopathy [Not Recovered/Not Resolved]
  - Retinal degeneration [Not Recovered/Not Resolved]
  - Thermal burn [Not Recovered/Not Resolved]
  - Urine abnormality [Recovered/Resolved]
  - Alopecia [Not Recovered/Not Resolved]
  - Off label use [Unknown]

NARRATIVE: CASE EVENT DATE: 19990101
